FAERS Safety Report 7428623-6 (Version None)
Quarter: 2011Q2

REPORT INFORMATION
  Report Type: 
  Country: None (occurrence: None)
  Receive Date: 20110413
  Receipt Date: 20110329
  Transmission Date: 20111010
  Serious: Yes (Other)
  Sender: FDA-Public Use
  Company Number: JPI-P-014381

PATIENT
  Age: 41 Year
  Sex: Female

DRUGS (5)
  1. UNSPECIFIED STIMULANTS [Concomitant]
  2. XYREM [Suspect]
     Indication: NARCOLEPSY
     Dosage: SEE IMAGE
     Route: 048
     Dates: start: 20110326, end: 20110327
  3. XYREM [Suspect]
     Indication: NARCOLEPSY
     Dosage: SEE IMAGE
     Route: 048
     Dates: start: 20110328, end: 20110301
  4. XYREM [Suspect]
     Indication: NARCOLEPSY
     Dosage: SEE IMAGE
     Route: 048
     Dates: start: 20110301, end: 20110301
  5. XYREM [Suspect]
     Indication: NARCOLEPSY
     Dosage: SEE IMAGE
     Route: 048
     Dates: start: 20110301

REACTIONS (4)
  - HYPOXIA [None]
  - OBSTRUCTIVE AIRWAYS DISORDER [None]
  - MUSCLE SPASMS [None]
  - DYSPNOEA [None]
